FAERS Safety Report 4716962-9 (Version None)
Quarter: 2005Q3

REPORT INFORMATION
  Report Type: 
  Country: None (occurrence: None)
  Receive Date: 20050713
  Receipt Date: 20050627
  Transmission Date: 20060218
  Serious: Yes (Hospitalization)
  Sender: FDA-Public Use
  Company Number: 2005-DE-02479GD

PATIENT
  Age: 37 Year
  Sex: Female

DRUGS (8)
  1. CLONIDINE [Suspect]
     Indication: DETOXIFICATION
     Dosage: TTS 2 FOR BP}110/70, TTS 1 FOR BP BETWEEN 80/50 AND 110/70, TD
     Route: 062
  2. PARACEFAN (CLONIDINE HDYROCHLORIDE) [Suspect]
     Indication: DETOXIFICATION
     Dosage: SEE IMAGE
  3. LORAZEPAM [Suspect]
     Indication: AGITATION
     Dosage: 1 MG G H PRN (Q 1 H PRN)
  4. LORAZEPAM [Suspect]
     Indication: ANXIETY
     Dosage: 1 MG G H PRN (Q 1 H PRN)
  5. LORAZEPAM [Suspect]
     Indication: MYALGIA
     Dosage: 1 MG G H PRN (Q 1 H PRN)
  6. TRAZODONE HCL [Suspect]
  7. NALTREXONE HCL [Suspect]
     Indication: DETOXIFICATION
     Dosage: 12.5 MG, PO
     Route: 048
  8. NEFAZODONE HCL [Suspect]

REACTIONS (1)
  - DELIRIUM [None]
